FAERS Safety Report 16875524 (Version 3)
Quarter: 2020Q3

REPORT INFORMATION
  Report Type: Spontaneous
  Country: RO (occurrence: RO)
  Receive Date: 20191002
  Receipt Date: 20200818
  Transmission Date: 20201102
  Serious: Yes (Congenital Anomaly, Other)
  Sender: FDA-Public Use
  Company Number: RO-AUROBINDO-AUR-APL-2019-063472

PATIENT
  Age: 8 Year
  Sex: Male
  Weight: 3 kg

DRUGS (7)
  1. LAMIVUDINE AND ZIDOVUDINE FILM?COATED TABLETS [Suspect]
     Active Substance: LAMIVUDINE\ZIDOVUDINE
     Indication: HEPATITIS B
     Dosage: 1 DOSAGE FORM, ONCE A DAY
     Route: 064
  2. VIRAMUNE [Suspect]
     Active Substance: NEVIRAPINE
     Indication: HIV INFECTION
     Dosage: 400 MILLIGRAM, ONCE A DAY
     Route: 064
  3. COMBIVIR [Suspect]
     Active Substance: LAMIVUDINE\ZIDOVUDINE
     Indication: HEPATITIS B
  4. NEVIRAPINE. [Suspect]
     Active Substance: NEVIRAPINE
     Indication: PRODUCT USED FOR UNKNOWN INDICATION
     Dosage: 400 MILLIGRAM, ONCE A DAY
     Route: 064
  5. COMBIVIR [Suspect]
     Active Substance: LAMIVUDINE\ZIDOVUDINE
     Indication: HIV INFECTION
     Dosage: 900 MILLIGRAM, ONCE A DAY
     Route: 064
  6. VIRAMUNE [Suspect]
     Active Substance: NEVIRAPINE
     Indication: HEPATITIS B
  7. LAMIVUDINE AND ZIDOVUDINE FILM?COATED TABLETS [Suspect]
     Active Substance: LAMIVUDINE\ZIDOVUDINE
     Indication: HIV INFECTION

REACTIONS (12)
  - Speech disorder developmental [Unknown]
  - Ataxia [Unknown]
  - Macrocephaly [Unknown]
  - Congenital central nervous system anomaly [Unknown]
  - Foetal exposure during pregnancy [Unknown]
  - Dandy-Walker syndrome [Unknown]
  - Attention deficit hyperactivity disorder [Unknown]
  - Neurodevelopmental disorder [Unknown]
  - Ventricular enlargement [Unknown]
  - Cerebellar hypoplasia [Unknown]
  - Cerebral disorder [Unknown]
  - Cyst [Unknown]
